FAERS Safety Report 24336407 (Version 1)
Quarter: 2024Q3

REPORT INFORMATION
  Report Type: Spontaneous
  Country: CN (occurrence: CN)
  Receive Date: 20240919
  Receipt Date: 20240919
  Transmission Date: 20241017
  Serious: No
  Sender: ROCHE
  Company Number: CN-ROCHE-3531393

PATIENT
  Age: 45 Year
  Sex: Male

DRUGS (2)
  1. TAMIFLU [Suspect]
     Active Substance: OSELTAMIVIR PHOSPHATE
     Indication: Influenza
     Dosage: 1 DF, DF=CAPSULES, FOR 5 DAYS
     Route: 048
     Dates: start: 20240210
  2. TAMIFLU [Suspect]
     Active Substance: OSELTAMIVIR PHOSPHATE
     Dosage: 1 DF, DF=CAPSULES, PLANNED FOR 10 DAYS
     Route: 048
     Dates: start: 20240317

REACTIONS (1)
  - Drug resistance [Unknown]
